FAERS Safety Report 4928415-3 (Version None)
Quarter: 2006Q1

REPORT INFORMATION
  Report Type: 
  Country: None (occurrence: None)
  Receive Date: 20060223
  Receipt Date: 20060215
  Transmission Date: 20060701
  Serious: Yes (Death)
  Sender: FDA-Public Use
  Company Number: 200610189BNE

PATIENT
  Age: 88 Year
  Sex: Female

DRUGS (2)
  1. CIPROFLOXACIN HCL [Suspect]
     Indication: PNEUMONIA
     Dates: start: 20051202
  2. AMOXICILLIN [Concomitant]

REACTIONS (6)
  - CLOSTRIDIUM COLITIS [None]
  - CONDITION AGGRAVATED [None]
  - DEHYDRATION [None]
  - DIVERTICULUM [None]
  - FAECAL INCONTINENCE [None]
  - HYPOTENSION [None]
